FAERS Safety Report 8760874 (Version 3)
Quarter: 2012Q4

REPORT INFORMATION
  Report Type: 
  Country: IE (occurrence: IE)
  Receive Date: 20120830
  Receipt Date: 20121126
  Transmission Date: 20130627
  Serious: Yes (Other)
  Sender: FDA-Public Use
  Company Number: IE-JNJFOC-20120811145

PATIENT
  Sex: Male

DRUGS (12)
  1. SIMPONI [Suspect]
     Indication: PRODUCT USED FOR UNKNOWN INDICATION
     Route: 058
     Dates: start: 20110321
  2. ONE ALPHA [Concomitant]
     Route: 065
  3. METHOTREXATE [Concomitant]
     Route: 065
  4. NEXIUM [Concomitant]
     Route: 065
  5. SULFASALAZINE [Concomitant]
     Route: 065
  6. DELTA CORTRIL [Concomitant]
     Route: 065
  7. FOLIC ACID [Concomitant]
     Route: 065
  8. CALCICHEW [Concomitant]
     Route: 065
  9. SERETIDE [Concomitant]
     Route: 065
  10. ZOCOR [Concomitant]
     Route: 065
  11. DIFENE [Concomitant]
     Route: 065
  12. PARACETAMOL [Concomitant]
     Route: 065

REACTIONS (1)
  - Colitis [Unknown]
